FAERS Safety Report 7226712-2 (Version None)
Quarter: 2011Q1

REPORT INFORMATION
  Report Type: 
  Country: None (occurrence: None)
  Receive Date: 20110110
  Receipt Date: 20110110
  Transmission Date: 20110831
  Serious: Yes (Hospitalization)
  Sender: FDA-Public Use
  Company Number: None

PATIENT
  Sex: Male
  Weight: 66 kg

DRUGS (10)
  1. LISINOPRIL [Concomitant]
  2. CAMPTOSAR [Suspect]
     Dosage: 268.5 MG
     Dates: end: 20101221
  3. DIOVAN HCT [Concomitant]
  4. BEVACIZUMAB (RHUMAB VEGF) [Suspect]
     Dosage: 340 MG
     Dates: end: 20101221
  5. ATIVAN [Concomitant]
  6. FLUOROURACIL [Suspect]
     Dosage: 572.8 MG
     Dates: end: 20101221
  7. LEUCOVORIN CALCIUM [Suspect]
     Dosage: 572.8 MG
     Dates: end: 20101221
  8. INSULIN PUMP [Concomitant]
  9. TIAZAC [Concomitant]
  10. GABAPENTIN [Concomitant]

REACTIONS (2)
  - GAIT DISTURBANCE [None]
  - SYNCOPE [None]
